FAERS Safety Report 13981651 (Version 1)
Quarter: 2017Q3

REPORT INFORMATION
  Report Type: Spontaneous
  Country: US (occurrence: US)
  Receive Date: 20170917
  Receipt Date: 20170917
  Transmission Date: 20171128
  Serious: Yes (Other)
  Sender: FDA-Public Use
  Company Number: None

PATIENT
  Age: 52 Year
  Sex: Female
  Weight: 49.5 kg

DRUGS (10)
  1. FLUTICASONE. [Concomitant]
     Active Substance: FLUTICASONE
  2. VITAMIN D [Concomitant]
     Active Substance: CHOLECALCIFEROL
  3. LEVOTHYROXINE. [Concomitant]
     Active Substance: LEVOTHYROXINE
  4. DOCUSATE SODIUM. [Concomitant]
     Active Substance: DOCUSATE SODIUM
  5. RISEDONATE [Suspect]
     Active Substance: RISEDRONATE SODIUM
     Indication: OSTEOPOROSIS
     Dosage: ?          QUANTITY:1 TABLET(S);OTHER FREQUENCY:ONCE MONTHLY;?
     Route: 048
     Dates: start: 20170226, end: 20170729
  6. ROLAIDS [Concomitant]
     Active Substance: CALCIUM CARBONATE\MAGNESIUM HYDROXIDE
  7. MAG CITRATE/OXIDE [Concomitant]
  8. GLUCOSAMINE/CHONDROITIN [Concomitant]
  9. CA CITRATE [Concomitant]
  10. ESTRADIOL VAG CR [Concomitant]

REACTIONS (1)
  - Gastrooesophageal reflux disease [None]

NARRATIVE: CASE EVENT DATE: 20170808
